FAERS Safety Report 20618927 (Version 1)
Quarter: 2022Q1

REPORT INFORMATION
  Report Type: Spontaneous
  Country: GB (occurrence: GB)
  Receive Date: 20220322
  Receipt Date: 20220322
  Transmission Date: 20220423
  Serious: Yes (Other)
  Sender: FDA-Public Use
  Company Number: GB-MHRA-TPP10631227C7335894YC1646758415553

PATIENT
  Age: 60 Year
  Sex: Male
  Weight: 85 kg

DRUGS (4)
  1. AMOXICILLIN [Suspect]
     Active Substance: AMOXICILLIN
     Indication: Product used for unknown indication
     Dosage: UNK
     Route: 065
     Dates: start: 20220308
  2. EPIPEN [Concomitant]
     Active Substance: EPINEPHRINE
     Indication: Product used for unknown indication
     Dosage: UNK (USE IF SYMPTOMS OF ANAPHYLAXIS DEVELOP AND CALL...)
     Route: 065
     Dates: start: 20220308
  3. FEXOFENADINE [Concomitant]
     Active Substance: FEXOFENADINE HYDROCHLORIDE
     Indication: Product used for unknown indication
     Dosage: UNK (TAKE ONE DAILY)
     Route: 065
     Dates: start: 20220308
  4. OMEPRAZOLE [Concomitant]
     Active Substance: OMEPRAZOLE
     Indication: Product used for unknown indication
     Dosage: UNK (TAKE ONE DAILY)
     Route: 065
     Dates: start: 20220120, end: 20220217

REACTIONS (2)
  - Swelling face [Recovering/Resolving]
  - Throat tightness [Unknown]

NARRATIVE: CASE EVENT DATE: 20220308
